FAERS Safety Report 8175265-3 (Version None)
Quarter: 2012Q1

REPORT INFORMATION
  Report Type: 
  Country: None (occurrence: None)
  Receive Date: 20120229
  Receipt Date: 20120221
  Transmission Date: 20120608
  Serious: Yes (Hospitalization, Other)
  Sender: FDA-Public Use
  Company Number: JP-CELGENEUS-087-21880-11012826

PATIENT
  Sex: Male

DRUGS (42)
  1. REVLIMID [Suspect]
     Dosage: 15 MILLIGRAM
     Route: 048
     Dates: start: 20110203, end: 20110223
  2. REVLIMID [Suspect]
     Dosage: 20 MILLIGRAM
     Route: 048
     Dates: start: 20110826, end: 20110915
  3. REVLIMID [Suspect]
     Dosage: 20 MILLIGRAM
     Route: 048
     Dates: start: 20111021, end: 20111110
  4. DEXAMETHASONE ACETATE [Suspect]
     Dosage: 40 MILLIGRAM
     Route: 048
     Dates: start: 20110211, end: 20110214
  5. ACTOS [Concomitant]
     Indication: DIABETES MELLITUS
     Dosage: 15 MILLIGRAM
     Route: 048
     Dates: start: 20101110, end: 20110511
  6. REVLIMID [Suspect]
     Dosage: 15 MILLIGRAM
     Route: 048
     Dates: start: 20110614, end: 20110704
  7. REVLIMID [Suspect]
     Dosage: 20 MILLIGRAM
     Route: 048
     Dates: start: 20110730, end: 20110818
  8. DEXAMETHASONE ACETATE [Suspect]
     Dosage: 40 MILLIGRAM
     Route: 048
     Dates: start: 20110219, end: 20110222
  9. MIGLITOL [Concomitant]
     Dosage: 150 MILLIGRAM
     Route: 048
     Dates: start: 20110614, end: 20111117
  10. RABEPRAZOLE SODIUM [Concomitant]
     Dosage: 10 MILLIGRAM
     Route: 048
     Dates: start: 20110614, end: 20111117
  11. SELBEX [Concomitant]
     Dosage: 150 MILLIGRAM
     Route: 048
     Dates: start: 20110614, end: 20111117
  12. MARZULENE-S [Concomitant]
     Route: 065
  13. LENDORMIN [Concomitant]
     Dosage: .25 MILLIGRAM
     Route: 048
  14. DEXAMETHASONE ACETATE [Suspect]
     Indication: MULTIPLE MYELOMA
     Dosage: 40 MILLIGRAM
     Route: 048
     Dates: start: 20101110, end: 20101207
  15. DEXAMETHASONE ACETATE [Suspect]
     Dosage: 40 MILLIGRAM
     Route: 048
     Dates: start: 20110315, end: 20110411
  16. DEXAMETHASONE ACETATE [Suspect]
     Dosage: 20 MILLIGRAM
     Route: 048
     Dates: start: 20110614, end: 20110704
  17. REVLIMID [Suspect]
     Dosage: 25 MILLIGRAM
     Route: 048
     Dates: start: 20101208, end: 20101228
  18. REVLIMID [Suspect]
     Dosage: 15 MILLIGRAM
     Route: 048
     Dates: start: 20110315, end: 20110404
  19. REVLIMID [Suspect]
     Dosage: 20 MILLIGRAM
     Route: 048
     Dates: start: 20110712, end: 20110719
  20. ACTOS [Concomitant]
     Dosage: 15 MILLIGRAM
     Route: 048
     Dates: start: 20110614, end: 20111117
  21. ADJUST-A [Concomitant]
     Dosage: 40 MILLIGRAM
     Route: 065
  22. REVLIMID [Suspect]
     Indication: MULTIPLE MYELOMA
     Dosage: 25 MILLIGRAM
     Route: 048
     Dates: start: 20101110, end: 20101130
  23. REVLIMID [Suspect]
     Dosage: 20 MILLIGRAM
     Route: 048
     Dates: start: 20110119, end: 20110126
  24. REVLIMID [Suspect]
     Dosage: 15 MILLIGRAM
     Route: 048
     Dates: start: 20110415, end: 20110505
  25. REVLIMID [Suspect]
     Dosage: 20 MILLIGRAM
     Route: 048
     Dates: start: 20110923, end: 20111013
  26. DEXAMETHASONE ACETATE [Suspect]
     Dosage: 40 MILLIGRAM
     Route: 048
     Dates: start: 20110119, end: 20110122
  27. ASPIRIN [Concomitant]
     Indication: PROPHYLAXIS
     Dosage: 100 MILLIGRAM
     Route: 048
     Dates: start: 20101110, end: 20110511
  28. ASPIRIN [Concomitant]
     Dosage: 100 MILLIGRAM
     Route: 048
     Dates: start: 20110614, end: 20111117
  29. MIGLITOL [Concomitant]
     Indication: DIABETES MELLITUS
     Dosage: 150 MILLIGRAM
     Route: 048
     Dates: start: 20101110, end: 20110511
  30. NESINA [Concomitant]
     Indication: DIABETES MELLITUS
     Dosage: 12.5 MILLIGRAM
     Route: 048
     Dates: start: 20101110, end: 20110511
  31. CELECOXIB [Concomitant]
     Indication: MULTIPLE MYELOMA
     Dosage: 100 MILLIGRAM
     Route: 065
  32. MAGMITT [Concomitant]
     Dosage: 500 MILLIGRAM
     Route: 048
  33. DEXAMETHASONE ACETATE [Suspect]
     Dosage: 40 MILLIGRAM
     Route: 048
     Dates: start: 20110414, end: 20110501
  34. RABEPRAZOLE SODIUM [Concomitant]
     Indication: PROPHYLAXIS
     Dosage: 10 MILLIGRAM
     Route: 048
     Dates: start: 20101110, end: 20110511
  35. SELBEX [Concomitant]
     Indication: PROPHYLAXIS
     Dosage: 50 MILLIGRAM
     Route: 048
     Dates: start: 20101110, end: 20110511
  36. CELECOXIB [Concomitant]
     Dosage: 200 MILLIGRAM
     Route: 048
     Dates: start: 20101110, end: 20110511
  37. ALENDRONATE SODIUM [Concomitant]
     Dosage: 35 MILLIGRAM
     Route: 065
  38. DEXAMETHASONE ACETATE [Suspect]
     Dosage: 40 MILLIGRAM
     Route: 048
     Dates: start: 20101208, end: 20101227
  39. DEXAMETHASONE ACETATE [Suspect]
     Dosage: 40 MILLIGRAM
     Route: 048
     Dates: start: 20110203, end: 20110206
  40. DEXAMETHASONE ACETATE [Suspect]
     Dosage: 20 MILLIGRAM
     Route: 048
     Dates: start: 20110712, end: 20110801
  41. NESINA [Concomitant]
     Dosage: 12.5 MILLIGRAM
     Route: 048
     Dates: start: 20110614, end: 20111117
  42. CELECOXIB [Concomitant]
     Dosage: 200 MILLIGRAM
     Route: 048
     Dates: start: 20110614, end: 20111117

REACTIONS (7)
  - HAEMOGLOBIN DECREASED [None]
  - BLOOD CREATININE INCREASED [None]
  - PLATELET COUNT DECREASED [None]
  - C-REACTIVE PROTEIN INCREASED [None]
  - DIARRHOEA [None]
  - WHITE BLOOD CELL COUNT DECREASED [None]
  - NEUTROPHIL COUNT DECREASED [None]
